FAERS Safety Report 15918559 (Version 1)
Quarter: 2019Q1

REPORT INFORMATION
  Report Type: Spontaneous
  Country: FR (occurrence: FR)
  Receive Date: 20190205
  Receipt Date: 20190205
  Transmission Date: 20190417
  Serious: Yes (Other)
  Sender: FDA-Public Use
  Company Number: FR-MYLANLABS-2019M1008967

PATIENT
  Age: 82 Year
  Sex: Female
  Weight: 74 kg

DRUGS (11)
  1. CLAMOXYL                           /00249601/ [Suspect]
     Active Substance: AMOXICILLIN
     Indication: INTERVERTEBRAL DISCITIS
     Dosage: 12 GRAM, QD
     Route: 048
     Dates: start: 20180514, end: 20180627
  2. CALCIPARINE [Suspect]
     Active Substance: HEPARIN CALCIUM
     Indication: THROMBOSIS PROPHYLAXIS
     Dosage: 2 DOSAGE FORM, QD
     Route: 058
     Dates: start: 201805, end: 20180627
  3. AZOPT [Concomitant]
     Active Substance: BRINZOLAMIDE
  4. SPIRONOLACTONE. [Suspect]
     Active Substance: SPIRONOLACTONE
     Indication: HYPERTENSION
     Dosage: 12.5 MILLIGRAM, QD
     Route: 048
     Dates: start: 20180515, end: 20180627
  5. PARACETAMOL [Concomitant]
     Active Substance: ACETAMINOPHEN
  6. BISOPROLOL [Concomitant]
     Active Substance: BISOPROLOL
  7. DIFFU K [Concomitant]
     Active Substance: POTASSIUM CHLORIDE
  8. SERESTA [Suspect]
     Active Substance: OXAZEPAM
     Indication: HALLUCINATION
     Dosage: 1 DOSAGE FORM, QD
     Route: 048
     Dates: start: 20180531, end: 20180627
  9. VENLAFAXINE [Concomitant]
     Active Substance: VENLAFAXINE HYDROCHLORIDE
  10. FUROSEMIDE. [Concomitant]
     Active Substance: FUROSEMIDE
  11. DIGOXINE NATIVELLE [Concomitant]
     Active Substance: DIGOXIN

REACTIONS (1)
  - Neutropenia [Recovered/Resolved]

NARRATIVE: CASE EVENT DATE: 20180627
